FAERS Safety Report 5498608-8 (Version None)
Quarter: 2007Q4

REPORT INFORMATION
  Report Type: 
  Country: None (occurrence: None)
  Receive Date: 20071025
  Receipt Date: 20071025
  Transmission Date: 20080405
  Serious: Yes (Other)
  Sender: FDA-Public Use
  Company Number: None

PATIENT
  Age: 7 Year
  Sex: Female
  Weight: 26.3086 kg

DRUGS (1)
  1. ZYRTEC [Suspect]
     Indication: HYPERSENSITIVITY
     Dosage: 1 CHEWABLE TABLET DAILY
     Dates: start: 20070921, end: 20071022

REACTIONS (3)
  - ABDOMINAL PAIN UPPER [None]
  - DECREASED ACTIVITY [None]
  - PAIN IN EXTREMITY [None]
